FAERS Safety Report 25481025 (Version 2)
Quarter: 2025Q2

REPORT INFORMATION
  Report Type: Spontaneous
  Country: US (occurrence: US)
  Receive Date: 20250625
  Receipt Date: 20250630
  Transmission Date: 20250717
  Serious: No
  Sender: AMGEN
  Company Number: US-AMGEN-USASP2025120397

PATIENT
  Age: 86 Year
  Sex: Female

DRUGS (2)
  1. REPATHA [Suspect]
     Active Substance: EVOLOCUMAB
     Indication: Product used for unknown indication
     Dosage: 140 MILLIGRAM, Q2WK
     Route: 065
     Dates: start: 2025
  2. REPATHA [Suspect]
     Active Substance: EVOLOCUMAB
     Route: 065
     Dates: start: 2025

REACTIONS (7)
  - Device difficult to use [Unknown]
  - Incorrect disposal of product [Unknown]
  - Injection site indentation [Unknown]
  - Dizziness [Unknown]
  - Injection site haemorrhage [Unknown]
  - Injection site pain [Unknown]
  - Injection site bruising [Not Recovered/Not Resolved]

NARRATIVE: CASE EVENT DATE: 20250601
